FAERS Safety Report 14027092 (Version 7)
Quarter: 2018Q1

REPORT INFORMATION
  Report Type: Report from Study
  Country: None (occurrence: SE)
  Receive Date: 20170929
  Receipt Date: 20180102
  Transmission Date: 20180508
  Serious: Yes (Hospitalization)
  Sender: FDA-Public Use
  Company Number: SE-ABBVIE-17K-150-2113213-00

PATIENT
  Age: 54 Year
  Sex: Female

DRUGS (4)
  1. DUODOPA [Suspect]
     Active Substance: CARBIDOPA\LEVODOPA
     Dosage: MD: 6.0 ML?CD: 2.1 ML/H?XD: 0.4 ML
     Route: 050
     Dates: start: 20170925, end: 2017
  2. DUODOPA [Suspect]
     Active Substance: CARBIDOPA\LEVODOPA
     Dosage: MD: 4.5 ML?CD: 2.8 ML/H?XD: 0.5 ML
     Route: 050
     Dates: start: 2017, end: 20171124
  3. DUODOPA [Suspect]
     Active Substance: CARBIDOPA\LEVODOPA
     Indication: PARKINSON^S DISEASE
     Route: 050
     Dates: start: 20170221, end: 201703
  4. DUODOPA [Suspect]
     Active Substance: CARBIDOPA\LEVODOPA
     Dosage: MD: 4.5 ML?CD: 2.7 ML/H?XD: 0.5 ML
     Route: 050
     Dates: start: 20171124

REACTIONS (10)
  - Abdominal pain [Not Recovered/Not Resolved]
  - General physical health deterioration [Unknown]
  - On and off phenomenon [Not Recovered/Not Resolved]
  - C-reactive protein increased [Recovering/Resolving]
  - Hyperkinesia [Not Recovered/Not Resolved]
  - Hyperkinesia [Recovered/Resolved]
  - Hyperkinesia [Recovered/Resolved]
  - Body temperature abnormal [Recovered/Resolved]
  - Computerised tomogram abdomen abnormal [Unknown]
  - Hyperkinesia [Recovered/Resolved]

NARRATIVE: CASE EVENT DATE: 2017
